FAERS Safety Report 5311569-7 (Version None)
Quarter: 2007Q2

REPORT INFORMATION
  Report Type: 
  Country: None (occurrence: None)
  Receive Date: 20070430
  Receipt Date: 20070418
  Transmission Date: 20071010
  Serious: Yes (Other)
  Sender: FDA-Public Use
  Company Number: PA-ROCHE-455119

PATIENT
  Sex: Female

DRUGS (4)
  1. CAPECITABINE [Suspect]
     Indication: BREAST CANCER
     Dosage: ROUTE AND FORM PREVIOUSLY REPORTED AS ORAL/TABLET, AND INTRAVENOUS.
     Route: 065
     Dates: end: 20070401
  2. HERCEPTIN [Suspect]
     Indication: BREAST CANCER
     Dosage: FORM REPORTED AS VIAL.
     Route: 042
     Dates: end: 20070401
  3. DOCETAXEL [Suspect]
     Indication: BREAST CANCER
     Route: 042
  4. TRAMADOL HCL [Suspect]
     Indication: PAIN
     Route: 065
     Dates: start: 20060901

REACTIONS (8)
  - ARTHRALGIA [None]
  - ASTHENIA [None]
  - CARDIAC FAILURE CONGESTIVE [None]
  - CARDIOMEGALY [None]
  - CHEST PAIN [None]
  - MYALGIA [None]
  - OEDEMA [None]
  - TACHYCARDIA [None]
